FAERS Safety Report 7914551-6 (Version None)
Quarter: 2011Q4

REPORT INFORMATION
  Report Type: 
  Country: None (occurrence: None)
  Receive Date: 20111115
  Receipt Date: 20111031
  Transmission Date: 20120403
  Serious: Yes (Death, Hospitalization, Other)
  Sender: FDA-Public Use
  Company Number: PHHY2011ES89653

PATIENT
  Age: 46 Year
  Sex: Male

DRUGS (10)
  1. CYCLOSPORINE [Suspect]
     Indication: LIVER TRANSPLANT
     Dosage: UNK UKN, UNK
     Dates: start: 20070101
  2. LAMIVUDINE (EPIVIR HBV) [Concomitant]
     Dosage: UNK UKN, UNK
  3. EFAVIRENZ [Concomitant]
     Dosage: UNK UKN, UNK
  4. PREDNISONE TAB [Concomitant]
     Dosage: UNK UKN, UNK
  5. PENTAMIDINE [Concomitant]
     Indication: PNEUMOCYSTIS JIROVECI INFECTION
  6. BASILIXIMAB [Suspect]
     Indication: LIVER TRANSPLANT
     Dosage: UNK UKN, UNK
     Dates: start: 20070101
  7. MYCOPHENOLATE MOFETIL [Concomitant]
  8. ABACAVIR [Concomitant]
     Dosage: UNK UKN, UNK
  9. ANTIHYPERTENSIVE DRUGS [Concomitant]
  10. ANTIRETROVIRAL THERAPY [Concomitant]

REACTIONS (29)
  - SKIN MASS [None]
  - JAUNDICE [None]
  - HEPATITIS C [None]
  - DECREASED APPETITE [None]
  - ASTHENIA [None]
  - DEATH [None]
  - COAGULATION TIME PROLONGED [None]
  - HEPATIC FIBROSIS [None]
  - LIVER DISORDER [None]
  - SCAB [None]
  - ASPARTATE AMINOTRANSFERASE INCREASED [None]
  - PYREXIA [None]
  - LUNG DISORDER [None]
  - SKIN NECROSIS [None]
  - FUNGAL INFECTION [None]
  - SKIN LESION [None]
  - HEPATIC FAILURE [None]
  - ASCITES [None]
  - PERITONITIS BACTERIAL [None]
  - HEPATIC ENCEPHALOPATHY [None]
  - SKIN ULCER [None]
  - HYPONATRAEMIA [None]
  - RENAL IMPAIRMENT [None]
  - STREPTOCOCCAL BACTERAEMIA [None]
  - LIVER TRANSPLANT REJECTION [None]
  - ALANINE AMINOTRANSFERASE INCREASED [None]
  - LUNG NEOPLASM [None]
  - LUNG INFILTRATION [None]
  - PULMONARY GRANULOMA [None]
